FAERS Safety Report 19405773 (Version 2)
Quarter: 2021Q2

REPORT INFORMATION
  Report Type: Spontaneous
  Country: JP (occurrence: JP)
  Receive Date: 20210611
  Receipt Date: 20210624
  Transmission Date: 20210717
  Serious: Yes (Death, Life-Threatening, Hospitalization, Other)
  Sender: FDA-Public Use
  Company Number: JP-PFIZER INC-2021648610

PATIENT
  Age: 84 Year
  Sex: Female
  Weight: 30 kg

DRUGS (3)
  1. METHOTREXATE SODIUM. [Suspect]
     Active Substance: METHOTREXATE SODIUM
     Dosage: 6 MG, WEEKLY
  2. METHOTREXATE SODIUM. [Suspect]
     Active Substance: METHOTREXATE SODIUM
     Indication: RHEUMATOID ARTHRITIS
     Dosage: 10 MG, WEEKLY
  3. CELECOXIB. [Concomitant]
     Active Substance: CELECOXIB
     Indication: RHEUMATOID ARTHRITIS
     Dosage: UNK

REACTIONS (16)
  - Bicytopenia [Fatal]
  - Stomatitis [Fatal]
  - Cardiac failure [Fatal]
  - Cerebral infarction [Fatal]
  - Asthenia [Fatal]
  - Leukopenia [Fatal]
  - Hypochromic anaemia [Fatal]
  - Gastric ulcer haemorrhage [Fatal]
  - Mouth ulceration [Fatal]
  - Malnutrition [Fatal]
  - Toxicity to various agents [Fatal]
  - Pleural effusion [Fatal]
  - Respiratory failure [Fatal]
  - Myelosuppression [Fatal]
  - Gelatinous transformation of the bone marrow [Fatal]
  - Disseminated intravascular coagulation [Fatal]
